FAERS Safety Report 20336996 (Version 1)
Quarter: 2022Q1

REPORT INFORMATION
  Report Type: Spontaneous
  Country: CN (occurrence: CN)
  Receive Date: 20220114
  Receipt Date: 20220114
  Transmission Date: 20220423
  Serious: Yes (Other)
  Sender: FDA-Public Use
  Company Number: CN-009507513-2201CHN002206

PATIENT
  Age: 57 Year
  Sex: Male
  Weight: 80 kg

DRUGS (3)
  1. KEYTRUDA [Suspect]
     Active Substance: PEMBROLIZUMAB
     Indication: Immunomodulatory therapy
     Dosage: 200 MG, ONCE
     Route: 041
     Dates: start: 20211020, end: 20211020
  2. CARBOPLATIN [Suspect]
     Active Substance: CARBOPLATIN
     Indication: Chemotherapy
     Dosage: 600 MG, ONCE
     Route: 041
     Dates: start: 20211020, end: 20211020
  3. PACLITAXEL [Suspect]
     Active Substance: PACLITAXEL
     Indication: Chemotherapy
     Dosage: 100 MILLIGRAM/SQ. METER? QD
     Route: 041
     Dates: start: 20211020, end: 20211027

REACTIONS (1)
  - Myelosuppression [Recovered/Resolved]

NARRATIVE: CASE EVENT DATE: 20211101
